FAERS Safety Report 9619496 (Version 3)
Quarter: 2014Q1

REPORT INFORMATION
  Report Type: Spontaneous
  Country: US (occurrence: US)
  Receive Date: 20131014
  Receipt Date: 20140325
  Transmission Date: 20141002
  Serious: Yes (Other)
  Sender: FDA-Public Use
  Company Number: US-PFIZER INC-2013282550

PATIENT
  Sex: Female

DRUGS (1)
  1. PREMPRO [Suspect]
     Indication: HOT FLUSH
     Dosage: 0.3/1.25MG, ONE EVERY 48 HOURS

REACTIONS (2)
  - Osteoporosis [Unknown]
  - Inappropriate schedule of drug administration [Unknown]
